FAERS Safety Report 12589565 (Version 2)
Quarter: 2016Q3

REPORT INFORMATION
  Report Type: Report from Study
  Country: US (occurrence: US)
  Receive Date: 20160725
  Receipt Date: 20160727
  Transmission Date: 20161109
  Serious: Yes (Other)
  Sender: FDA-Public Use
  Company Number: US-GILEAD-2016-0215311

PATIENT
  Age: 68 Year
  Sex: Female

DRUGS (2)
  1. ADCIRCA [Suspect]
     Active Substance: TADALAFIL
     Indication: PRODUCT USED FOR UNKNOWN INDICATION
     Dosage: 20 MG, BID
     Route: 065
     Dates: start: 201605
  2. AMBRISENTAN [Suspect]
     Active Substance: AMBRISENTAN
     Indication: PRODUCT USED FOR UNKNOWN INDICATION
     Dosage: 10 MG, QD
     Route: 065
     Dates: start: 201605

REACTIONS (14)
  - Tremor [Unknown]
  - Condition aggravated [Unknown]
  - Headache [Not Recovered/Not Resolved]
  - Lung disorder [Unknown]
  - Cough [Unknown]
  - Chest discomfort [Unknown]
  - Peripheral swelling [Unknown]
  - Pain in extremity [Unknown]
  - Bone pain [Unknown]
  - Rheumatoid arthritis [Unknown]
  - Eye swelling [Unknown]
  - Chills [Unknown]
  - Dyspnoea [Unknown]
  - Upper-airway cough syndrome [Unknown]
